FAERS Safety Report 16364026 (Version 1)
Quarter: 2019Q2

REPORT INFORMATION
  Report Type: Spontaneous
  Country: HR (occurrence: HR)
  Receive Date: 20190528
  Receipt Date: 20190528
  Transmission Date: 20190711
  Serious: Yes (Other)
  Sender: FDA-Public Use
  Company Number: HR-PFIZER INC-2019222059

PATIENT
  Sex: Male

DRUGS (3)
  1. CALIXTA [Suspect]
     Active Substance: MIRTAZAPINE
     Dosage: 1 BOX
     Route: 048
     Dates: start: 20181231, end: 20181231
  2. LYRICA [Suspect]
     Active Substance: PREGABALIN
     Dosage: 1 BOX
     Route: 048
     Dates: start: 20181231, end: 20181231
  3. TRAMAL [Suspect]
     Active Substance: TRAMADOL
     Dosage: 1 BOX
     Route: 048
     Dates: start: 20181231, end: 20181231

REACTIONS (5)
  - Miosis [Unknown]
  - Sluggishness [Unknown]
  - Somnolence [Unknown]
  - Intentional overdose [Unknown]
  - Suicide attempt [Unknown]

NARRATIVE: CASE EVENT DATE: 20181231
